FAERS Safety Report 13296074 (Version 1)
Quarter: 2017Q1

REPORT INFORMATION
  Report Type: Spontaneous
  Country: US (occurrence: US)
  Receive Date: 20170304
  Receipt Date: 20170304
  Transmission Date: 20170428
  Serious: No
  Sender: FDA-Public Use
  Company Number: US-SUN PHARMACEUTICAL INDUSTRIES LTD-2016US-112940

PATIENT
  Sex: Male

DRUGS (1)
  1. METOPROLOL. [Suspect]
     Active Substance: METOPROLOL
     Indication: ATRIAL FIBRILLATION
     Dosage: 1/2 DF, BID
     Route: 065

REACTIONS (4)
  - Dizziness [Unknown]
  - Wrong technique in product usage process [Unknown]
  - Product use issue [Unknown]
  - Blood pressure decreased [Unknown]
